FAERS Safety Report 10266383 (Version 2)
Quarter: 2014Q2

REPORT INFORMATION
  Report Type: Report from Study
  Country: CA (occurrence: CA)
  Receive Date: 20140628
  Receipt Date: 20140628
  Transmission Date: 20141212
  Serious: Yes (Other)
  Sender: FDA-Public Use
  Company Number: CA-ABBVIE-13P-028-1183935-00

PATIENT
  Age: 57 Year
  Sex: Female
  Weight: 65.83 kg

DRUGS (6)
  1. HUMIRA [Suspect]
     Indication: CROHN^S DISEASE
     Route: 058
     Dates: start: 20080623, end: 20131028
  2. HUMIRA [Suspect]
     Route: 058
     Dates: start: 20131117
  3. COLESTOD [Concomitant]
     Indication: FLUID OVERLOAD
     Route: 048
     Dates: start: 2010
  4. IMURAN [Concomitant]
     Indication: CROHN^S DISEASE
     Route: 048
     Dates: start: 2010
  5. APO-OMEPRAZOLE [Concomitant]
     Indication: DYSPEPSIA
     Route: 048
     Dates: start: 2012
  6. ASPIRIN [Concomitant]
     Indication: ANTICOAGULANT THERAPY
     Route: 048
     Dates: start: 2008

REACTIONS (5)
  - Intestinal obstruction [Recovering/Resolving]
  - Ileostomy [Recovering/Resolving]
  - Ileostomy closure [Recovering/Resolving]
  - Inappropriate schedule of drug administration [Recovered/Resolved]
  - Vomiting [Unknown]
